FAERS Safety Report 4943872-4 (Version None)
Quarter: 2006Q1

REPORT INFORMATION
  Report Type: 
  Country: None (occurrence: None)
  Receive Date: 20060310
  Receipt Date: 20060302
  Transmission Date: 20060701
  Serious: Yes (Life-Threatening, Hospitalization, Disabling)
  Sender: FDA-Public Use
  Company Number: HQWYE107402MAR06

PATIENT
  Age: 55 Year
  Sex: Male

DRUGS (7)
  1. INDERAL [Suspect]
     Dosage: 240 MG 1 X PER  1 DAY
     Route: 048
     Dates: end: 20060207
  2. DIGOXIN [Suspect]
     Dosage: 250 UG 1X  PER 1 DAY
     Route: 048
     Dates: end: 20060207
  3. FUROSEMIDE [Concomitant]
  4. SPIRONOLACTONE [Concomitant]
  5. THIAMINE (THIAMINE) [Concomitant]
  6. VITAMIN B COMPLEX TAB [Concomitant]
  7. PERINDOPRIL (PERINDOPRIL) [Concomitant]

REACTIONS (3)
  - BRADYCARDIA [None]
  - PERIPHERAL ISCHAEMIA [None]
  - THROMBOSIS [None]
